FAERS Safety Report 4496157-7 (Version None)
Quarter: 2004Q4

REPORT INFORMATION
  Report Type: 
  Country: None (occurrence: None)
  Receive Date: 20041108
  Receipt Date: 20041108
  Transmission Date: 20050328
  Serious: Yes (Life-Threatening)
  Sender: FDA-Public Use
  Company Number: None

PATIENT
  Age: 69 Year
  Sex: Female
  Weight: 91.8 kg

DRUGS (2)
  1. DILAUDID [Suspect]
     Indication: MUCOSAL INFLAMMATION
     Dosage: 1.2 MG OVER 1-2HRS
     Dates: start: 20041031
  2. DILAUDID [Suspect]
     Indication: PAIN
     Dosage: 1.2 MG OVER 1-2HRS
     Dates: start: 20041031

REACTIONS (3)
  - COMA [None]
  - HYPOTENSION [None]
  - OVERDOSE [None]
